FAERS Safety Report 7801903-8 (Version None)
Quarter: 2011Q4

REPORT INFORMATION
  Report Type: 
  Country: None (occurrence: None)
  Receive Date: 20111007
  Receipt Date: 20111004
  Transmission Date: 20120403
  Serious: Yes (Life-Threatening, Other)
  Sender: FDA-Public Use
  Company Number: US-PFIZER INC-2011200514

PATIENT
  Age: 48 Year
  Sex: Female

DRUGS (2)
  1. GEODON [Suspect]
     Indication: MANIA
  2. GEODON [Suspect]
     Indication: BIPOLAR DISORDER
     Dosage: 80 MG, 2X/DAY
     Dates: start: 20100101, end: 20110101

REACTIONS (1)
  - NARCOLEPSY [None]
